FAERS Safety Report 5436949-0 (Version None)
Quarter: 2007Q3

REPORT INFORMATION
  Report Type: 
  Country: None (occurrence: None)
  Receive Date: 20070831
  Receipt Date: 20070827
  Transmission Date: 20080115
  Serious: Yes (Life-Threatening)
  Sender: FDA-Public Use
  Company Number: JP-ASTRAZENECA-2007AP04776

PATIENT
  Age: 21335 Day
  Sex: Male
  Weight: 53.9 kg

DRUGS (11)
  1. XYLOCAINE VISCOUS [Suspect]
     Indication: LOCAL ANAESTHESIA
     Route: 049
     Dates: start: 20070727, end: 20070727
  2. XYLOCAINE [Suspect]
     Indication: LOCAL ANAESTHESIA
     Route: 049
     Dates: start: 20070727, end: 20070727
  3. CERCINE [Suspect]
     Indication: EPILEPSY
     Route: 042
     Dates: start: 20070727, end: 20070727
  4. ALLOPURINOL [Concomitant]
     Indication: HYPERURICAEMIA
     Route: 048
     Dates: start: 20070702
  5. LASIX [Concomitant]
     Indication: CARDIAC FAILURE
     Route: 048
     Dates: start: 20070709
  6. ALDACTONE [Concomitant]
     Indication: CARDIAC FAILURE
     Route: 048
     Dates: start: 20070709
  7. HALFDIGOXIN [Concomitant]
     Indication: CARDIAC FAILURE
     Route: 048
     Dates: start: 20070709
  8. ASPIRIN [Concomitant]
     Indication: ATRIAL FIBRILLATION
     Route: 048
     Dates: start: 20070709
  9. WARFARIN SODIUM [Concomitant]
     Indication: ATRIAL FIBRILLATION
     Route: 048
     Dates: start: 20070710
  10. ARTIST [Concomitant]
     Indication: CARDIAC FAILURE
     Route: 048
     Dates: start: 20070712
  11. LANSOPRAZOLE [Concomitant]
     Indication: REFLUX OESOPHAGITIS
     Route: 048
     Dates: start: 20070725

REACTIONS (4)
  - BLOOD PRESSURE DECREASED [None]
  - EPILEPSY [None]
  - OVERDOSE [None]
  - SOMNOLENCE [None]
